FAERS Safety Report 8909606 (Version 1)
Quarter: 2012Q4

REPORT INFORMATION
  Report Type: Report from Study
  Country: US (occurrence: US)
  Receive Date: 20121115
  Receipt Date: 20121115
  Transmission Date: 20130627
  Serious: Yes (Other)
  Sender: FDA-Public Use
  Company Number: US-BAYER-2012-118520

PATIENT
  Age: 10 Year
  Sex: Male

DRUGS (4)
  1. SORAFENIB (RAF KINASE INHIBITOR) [Suspect]
     Indication: ACUTE MYELOID LEUKEMIA
     Dosage: 250 mg, BID
     Route: 048
  2. SORAFENIB (RAF KINASE INHIBITOR) [Interacting]
     Indication: ACUTE MYELOID LEUKEMIA
     Dosage: 200 mg, QD
     Route: 048
  3. SORAFENIB (RAF KINASE INHIBITOR) [Interacting]
     Indication: ACUTE MYELOID LEUKEMIA
     Dosage: 200 mg, BID
     Route: 048
  4. VORICONAZOLE [Suspect]
     Indication: ANTIFUNGAL PROPHYLAXIS
     Dosage: 150 mg, BID

REACTIONS (3)
  - Inhibitory drug interaction [None]
  - Drug level decreased [None]
  - Viral infection [None]
